FAERS Safety Report 14096248 (Version 1)
Quarter: 2017Q4

REPORT INFORMATION
  Report Type: Report from Study
  Country: US (occurrence: US)
  Receive Date: 20171016
  Receipt Date: 20171016
  Transmission Date: 20180321
  Serious: No
  Sender: FDA-Public Use
  Company Number: US-AMGEN-USASL2017126844

PATIENT
  Age: 60 Year
  Sex: Female

DRUGS (4)
  1. CALCIUM/VITAMIN D3 [Concomitant]
     Dosage: 600-800 MG, BID
  2. DICLOFENAC POTASSIUM. [Concomitant]
     Active Substance: DICLOFENAC POTASSIUM
     Dosage: 50 MG, BID
  3. PROLIA [Suspect]
     Active Substance: DENOSUMAB
     Indication: OSTEOPOROSIS
     Dosage: 60 MG, Q6MO
     Route: 058
  4. ESTRING [Concomitant]
     Active Substance: ESTRADIOL
     Dosage: 2 MG, Q3MO

REACTIONS (1)
  - Off label use [Unknown]
